FAERS Safety Report 6813920-5 (Version None)
Quarter: 2010Q3

REPORT INFORMATION
  Report Type: 
  Country: None (occurrence: None)
  Receive Date: 20100702
  Receipt Date: 20100618
  Transmission Date: 20110219
  Serious: Yes (Hospitalization)
  Sender: FDA-Public Use
  Company Number: IL-RANBAXY-2010RR-35271

PATIENT

DRUGS (3)
  1. METAMIZOLE [Suspect]
  2. ACETAMINOPHEN [Suspect]
  3. CARBOCISTEINE [Suspect]

REACTIONS (2)
  - OVERDOSE [None]
  - RENAL IMPAIRMENT [None]
